FAERS Safety Report 9478861 (Version 1)
Quarter: 2013Q3

REPORT INFORMATION
  Report Type: Spontaneous
  Country: RO (occurrence: RO)
  Receive Date: 20130827
  Receipt Date: 20130827
  Transmission Date: 20140515
  Serious: Yes (Other)
  Sender: FDA-Public Use
  Company Number: RO-ASTRAZENECA-2013SE64462

PATIENT
  Sex: Female

DRUGS (3)
  1. SYMBICORT TURBUHALER [Suspect]
     Indication: ASTHMA
     Dosage: 160/4.5 UG EVERY 12 HOURS
     Route: 055
     Dates: start: 20130819, end: 20130820
  2. SERETIDE [Concomitant]
     Indication: ASTHMA
     Dates: start: 2009
  3. SERETIDE [Concomitant]
     Indication: RHINITIS ALLERGIC
     Dates: start: 2009

REACTIONS (3)
  - Asthma [Recovered/Resolved]
  - Asphyxia [Recovered/Resolved]
  - Cough [Recovered/Resolved]
